FAERS Safety Report 6796315-2 (Version None)
Quarter: 2010Q2

REPORT INFORMATION
  Report Type: 
  Country: None (occurrence: None)
  Receive Date: 20100624
  Receipt Date: 20100624
  Transmission Date: 20101027
  Serious: No
  Sender: FDA-Public Use
  Company Number: None

PATIENT
  Sex: Female
  Weight: 90.7194 kg

DRUGS (4)
  1. ACIPHEX [Suspect]
     Indication: GASTRIC POLYPS
     Dosage: 1 BID ORAL (ON + OFF) SINCE TAKING ACIPHEX - 2006
     Route: 048
  2. ACIPHEX [Suspect]
     Indication: GASTRITIS
     Dosage: 1 BID ORAL (ON + OFF) SINCE TAKING ACIPHEX - 2006
     Route: 048
  3. ACIPHEX [Suspect]
     Indication: GASTROOESOPHAGEAL REFLUX DISEASE
     Dosage: 1 BID ORAL (ON + OFF) SINCE TAKING ACIPHEX - 2006
     Route: 048
  4. ACIPHEX [Suspect]
     Indication: PEPTIC ULCER
     Dosage: 1 BID ORAL (ON + OFF) SINCE TAKING ACIPHEX - 2006
     Route: 048

REACTIONS (1)
  - NO ADVERSE EVENT [None]
